FAERS Safety Report 9661151 (Version 1)
Quarter: 2013Q4

REPORT INFORMATION
  Report Type: Spontaneous
  Country: US (occurrence: None)
  Receive Date: 20131030
  Receipt Date: 20131030
  Transmission Date: 20140711
  Serious: Yes (Death)
  Sender: FDA-Public Use
  Company Number: ADR-2013-01958

PATIENT
  Age: 80 Year
  Sex: Male

DRUGS (4)
  1. BACLOFEN [Suspect]
  2. DILAUDID [Suspect]
  3. BUPIVACAINE [Suspect]
  4. CLONIDINE [Suspect]

REACTIONS (1)
  - Asthenia [None]
